FAERS Safety Report 21944888 (Version 1)
Quarter: 2023Q1

REPORT INFORMATION
  Report Type: Spontaneous
  Country: US (occurrence: US)
  Receive Date: 20230202
  Receipt Date: 20230202
  Transmission Date: 20230418
  Serious: No
  Sender: FDA-Public Use
  Company Number: US-BAYER-2023P002988

PATIENT
  Age: 70 Year
  Sex: Female

DRUGS (4)
  1. AVELOX [Suspect]
     Active Substance: MOXIFLOXACIN HYDROCHLORIDE
     Dosage: UNK
     Route: 048
     Dates: start: 20131115
  2. DUREZOL [Suspect]
     Active Substance: DIFLUPREDNATE
  3. METHACYCLINE HYDROCHLORIDE [Suspect]
     Active Substance: METHACYCLINE HYDROCHLORIDE
     Dosage: UNK
     Dates: start: 202208
  4. PRED FORTE [Concomitant]
     Active Substance: PREDNISOLONE ACETATE

REACTIONS (1)
  - Visual impairment [None]

NARRATIVE: CASE EVENT DATE: 20130101
